FAERS Safety Report 11614449 (Version 1)
Quarter: 2015Q4

REPORT INFORMATION
  Report Type: Report from Study
  Country: CH (occurrence: CH)
  Receive Date: 20151009
  Receipt Date: 20151009
  Transmission Date: 20160304
  Serious: Yes (Other)
  Sender: FDA-Public Use
  Company Number: CH-ROCHE-1642526

PATIENT

DRUGS (4)
  1. 5-FU [Suspect]
     Active Substance: FLUOROURACIL
     Indication: NEOPLASM MALIGNANT
     Route: 065
  2. CAPECITABINE. [Suspect]
     Active Substance: CAPECITABINE
     Indication: NEOPLASM MALIGNANT
     Route: 065
  3. FOLINIC ACID [Suspect]
     Active Substance: LEUCOVORIN
     Indication: NEOPLASM MALIGNANT
     Route: 065
  4. OXALIPLATIN. [Suspect]
     Active Substance: OXALIPLATIN
     Indication: NEOPLASM MALIGNANT
     Route: 065

REACTIONS (12)
  - Palmar-plantar erythrodysaesthesia syndrome [Unknown]
  - Dry skin [Unknown]
  - Infection [Unknown]
  - Dehydration [Unknown]
  - Mucosal inflammation [Unknown]
  - Vomiting [Unknown]
  - Nausea [Unknown]
  - Leukopenia [Unknown]
  - Alopecia [Unknown]
  - Thrombocytopenia [Unknown]
  - Anaemia [Unknown]
  - Diarrhoea [Unknown]
